FAERS Safety Report 25180814 (Version 4)
Quarter: 2025Q4

REPORT INFORMATION
  Report Type: Report from Study
  Country: US (occurrence: US)
  Receive Date: 20250409
  Receipt Date: 20251024
  Transmission Date: 20260117
  Serious: Yes (Other)
  Sender: ABBVIE
  Company Number: US-ABBVIE-6210788

PATIENT
  Age: 73 Year
  Sex: Female
  Weight: 108.86 kg

DRUGS (7)
  1. ELAHERE [Suspect]
     Active Substance: MIRVETUXIMAB SORAVTANSINE-GYNX
     Indication: Ovarian cancer
     Dosage: FORM STRENGTH: 6 MILLIGRAM(S)/KILOGRAM
     Route: 042
     Dates: start: 202412
  2. ELAHERE [Suspect]
     Active Substance: MIRVETUXIMAB SORAVTANSINE-GYNX
     Indication: Ovarian cancer
     Dosage: FORM STRENGTH: 6 MILLIGRAM(S)/KILOGRAM
     Route: 042
     Dates: start: 20250212, end: 20250212
  3. ELAHERE [Suspect]
     Active Substance: MIRVETUXIMAB SORAVTANSINE-GYNX
     Indication: Ovarian cancer
     Dosage: FORM STRENGTH: 6 MILLIGRAM(S)/KILOGRAM
     Route: 042
     Dates: start: 20250305
  4. ELAHERE [Suspect]
     Active Substance: MIRVETUXIMAB SORAVTANSINE-GYNX
     Indication: Ovarian cancer
     Route: 042
  5. VITAMIN D [Concomitant]
     Active Substance: VITAMIN D NOS
     Indication: Vitamin supplementation
     Route: 065
  6. OXYCODONE [Concomitant]
     Active Substance: OXYCODONE
     Indication: Pain
     Route: 065
  7. DEXAMETHASONE [Concomitant]
     Active Substance: DEXAMETHASONE
     Indication: Nausea
     Dosage: AS NEEDED
     Route: 065

REACTIONS (14)
  - Blindness [Recovering/Resolving]
  - Dry eye [Not Recovered/Not Resolved]
  - Cerebral disorder [Unknown]
  - Arthralgia [Not Recovered/Not Resolved]
  - Blood creatinine increased [Unknown]
  - Hypoacusis [Not Recovered/Not Resolved]
  - Weight decreased [Unknown]
  - Neuropathy peripheral [Recovering/Resolving]
  - Asthenia [Unknown]
  - Headache [Unknown]
  - Drug resistance [Recovered/Resolved]
  - Somnolence [Unknown]
  - Tooth disorder [Unknown]
  - Carbohydrate antigen 125 increased [Unknown]

NARRATIVE: CASE EVENT DATE: 20241201
